FAERS Safety Report 14726447 (Version 4)
Quarter: 2019Q4

REPORT INFORMATION
  Report Type: Report from Study
  Country: US (occurrence: US)
  Receive Date: 20180406
  Receipt Date: 20191018
  Transmission Date: 20200122
  Serious: Yes (Other)
  Sender: FDA-Public Use
  Company Number: US-ASTELLAS-2018US016317

PATIENT
  Age: 72 Year
  Sex: Male

DRUGS (2)
  1. ENZALUTAMIDE [Suspect]
     Active Substance: ENZALUTAMIDE
     Indication: PROSTATE CANCER
     Route: 048
     Dates: start: 2017
  2. ENZALUTAMIDE [Suspect]
     Active Substance: ENZALUTAMIDE
     Route: 048
     Dates: start: 20190812

REACTIONS (5)
  - Rash [Recovered/Resolved]
  - Drug ineffective [Unknown]
  - Hypothyroidism [Unknown]
  - Malignant neoplasm progression [Unknown]
  - Lip swelling [Unknown]

NARRATIVE: CASE EVENT DATE: 20180330
